FAERS Safety Report 6466253-3 (Version None)
Quarter: 2009Q4

REPORT INFORMATION
  Report Type: 
  Country: None (occurrence: None)
  Receive Date: 20091202
  Receipt Date: 20091120
  Transmission Date: 20100525
  Serious: Yes (Other)
  Sender: FDA-Public Use
  Company Number: PHHY2009GB40776

PATIENT
  Sex: Male

DRUGS (2)
  1. TEGRETOL [Suspect]
     Dosage: 400-500 MG
  2. FRISIUM [Concomitant]
     Dosage: 10 MG, UNK

REACTIONS (3)
  - CONVULSION [None]
  - PRODUCT TASTE ABNORMAL [None]
  - WRONG DRUG ADMINISTERED [None]
